FAERS Safety Report 6792841-0 (Version None)
Quarter: 2010Q2

REPORT INFORMATION
  Report Type: 
  Country: None (occurrence: None)
  Receive Date: 20100624
  Receipt Date: 20081006
  Transmission Date: 20101027
  Serious: No
  Sender: FDA-Public Use
  Company Number: US-PFIZER INC-2008083966

PATIENT
  Sex: Female
  Weight: 86.4 kg

DRUGS (5)
  1. GEODON [Suspect]
     Indication: DEPRESSION
     Dates: start: 20080401
  2. GEODON [Suspect]
     Indication: BIPOLAR DISORDER
  3. PLAVIX [Concomitant]
     Indication: PERIPHERAL VASCULAR DISORDER
  4. KLONOPIN [Concomitant]
  5. ADDERALL 10 [Concomitant]

REACTIONS (1)
  - ALOPECIA [None]
